FAERS Safety Report 24279119 (Version 1)
Quarter: 2024Q3

REPORT INFORMATION
  Report Type: Spontaneous
  Country: US (occurrence: None)
  Receive Date: 20240830
  Receipt Date: 20240830
  Transmission Date: 20241016
  Serious: Yes (unspecified)
  Sender: Public
  Company Number: None

PATIENT
  Age: 33 Year
  Sex: Female
  Weight: 57.5 kg

DRUGS (1)
  1. FERRLECIT [Suspect]
     Active Substance: SODIUM FERRIC GLUCONATE COMPLEX
     Indication: Anaemia
     Dosage: 125 MG INTRAVENOUS DRIP
     Route: 041
     Dates: start: 20240813, end: 20240813

REACTIONS (8)
  - Back pain [None]
  - Pain [None]
  - Chest pain [None]
  - Dysphagia [None]
  - Peripheral swelling [None]
  - Musculoskeletal stiffness [None]
  - Heart rate increased [None]
  - Limb discomfort [None]

NARRATIVE: CASE EVENT DATE: 20240813
